FAERS Safety Report 23210545 (Version 2)
Quarter: 2024Q1

REPORT INFORMATION
  Report Type: Report from Study
  Country: DE (occurrence: DE)
  Receive Date: 20231121
  Receipt Date: 20240308
  Transmission Date: 20240409
  Serious: Yes (Life-Threatening, Hospitalization)
  Sender: FDA-Public Use
  Company Number: DE-TEVA-2023-DE-2947554

PATIENT

DRUGS (2)
  1. HEPARIN [Suspect]
     Active Substance: HEPARIN SODIUM
     Indication: Anticoagulant therapy
     Route: 065
  2. MELPHALAN [Suspect]
     Active Substance: MELPHALAN
     Indication: Neoplasm malignant
     Dosage: DOSAGE TEXT: PERCUTANEOUS HEPATIC CHEMOSATURATION PROCEDURE
     Route: 050

REACTIONS (1)
  - Post procedural haemorrhage [Recovered/Resolved]
